FAERS Safety Report 22636083 (Version 1)
Quarter: 2023Q2

REPORT INFORMATION
  Report Type: Report from Study
  Country: IE (occurrence: None)
  Receive Date: 20230623
  Receipt Date: 20230623
  Transmission Date: 20230722
  Serious: Yes (Death, Hospitalization, Other)
  Sender: FDA-Public Use
  Company Number: IE-ROCHE-3355432

PATIENT
  Age: 77 Year
  Sex: Female
  Weight: 56.2 kg

DRUGS (9)
  1. PRALSETINIB [Suspect]
     Active Substance: PRALSETINIB
     Indication: Non-small cell lung cancer metastatic
     Dosage: ON 20/MAY/2023, THE LAST DOSE PRIOR TO ADVERSE EVENT WAS TAKEN
     Route: 048
     Dates: start: 20230503
  2. ATORVASTATIN [Concomitant]
     Active Substance: ATORVASTATIN
  3. PANTOPRAZOLE [Concomitant]
     Active Substance: PANTOPRAZOLE
  4. PERINDOPRIL [Concomitant]
     Active Substance: PERINDOPRIL
  5. LEVOTHYROXINE [Concomitant]
     Active Substance: LEVOTHYROXINE
  6. APIXABAN [Concomitant]
     Active Substance: APIXABAN
     Dosage: 5 MG 2
  7. LAMOTRIGINE [Concomitant]
     Active Substance: LAMOTRIGINE
     Dosage: 50 MG 2
  8. PROPRANOLOL HYDROCHLORIDE [Concomitant]
     Active Substance: PROPRANOLOL HYDROCHLORIDE
     Dosage: 40 MG 2
  9. ZOPICLONE [Concomitant]
     Active Substance: ZOPICLONE

REACTIONS (8)
  - Hyperthermia [Recovered/Resolved]
  - Chills [Recovered/Resolved]
  - Pyelonephritis [Recovered/Resolved]
  - Respiratory distress [Fatal]
  - Femur fracture [Fatal]
  - Fall [Fatal]
  - Hip fracture [Unknown]
  - Pneumonia [Fatal]

NARRATIVE: CASE EVENT DATE: 20230519
